FAERS Safety Report 4300002-X (Version None)
Quarter: 2004Q1

REPORT INFORMATION
  Report Type: 
  Country: None (occurrence: None)
  Receive Date: 20040219
  Receipt Date: 20040219
  Transmission Date: 20041129
  Serious: Yes (Hospitalization)
  Sender: FDA-Public Use
  Company Number: None

PATIENT
  Age: 70 Year
  Sex: Male
  Weight: 71.2147 kg

DRUGS (9)
  1. DIGOXIN [Suspect]
     Indication: CARDIAC FAILURE CONGESTIVE
     Dosage: 1 PO QD
     Route: 048
  2. FUROSEMIDE [Concomitant]
  3. METOPROLOL [Concomitant]
  4. GOSRELIN [Concomitant]
  5. NITROGLYCERIN [Concomitant]
  6. PERCOCET [Concomitant]
  7. WARFARIN SODIUM [Concomitant]
  8. SIMVASTATIN [Concomitant]
  9. RABEPRAZOLE SODIUM [Concomitant]

REACTIONS (5)
  - ATRIOVENTRICULAR BLOCK FIRST DEGREE [None]
  - CONDITION AGGRAVATED [None]
  - DRUG TOXICITY [None]
  - FATIGUE [None]
  - RENAL IMPAIRMENT [None]
